FAERS Safety Report 9203069 (Version 1)
Quarter: 2013Q1

REPORT INFORMATION
  Report Type: Spontaneous
  Country: PR (occurrence: None)
  Receive Date: 20130328
  Receipt Date: 20130328
  Transmission Date: 20140127
  Serious: Yes (Other)
  Sender: FDA-Public Use
  Company Number: ADR-2013UNK036

PATIENT
  Age: 47 Year
  Sex: Male

DRUGS (1)
  1. GABAPENTIN [Suspect]
     Indication: NEURALGIA
     Route: 048

REACTIONS (10)
  - Amnesia [None]
  - Disorientation [None]
  - Inappropriate schedule of drug administration [None]
  - Abnormal behaviour [None]
  - Somnambulism [None]
  - Convulsion [None]
  - Impaired work ability [None]
  - Anhedonia [None]
  - Family stress [None]
  - Economic problem [None]
